FAERS Safety Report 8846210 (Version 2)
Quarter: 2012Q4

REPORT INFORMATION
  Report Type: 
  Country: PR (occurrence: PR)
  Receive Date: 20121017
  Receipt Date: 20121102
  Transmission Date: 20130627
  Serious: No
  Sender: FDA-Public Use
  Company Number: PR-ABBOTT-12P-131-0979797-00

PATIENT
  Age: 36 Year
  Sex: Female
  Weight: 56.3 kg

DRUGS (2)
  1. HUMIRA [Suspect]
     Indication: RHEUMATOID ARTHRITIS
     Route: 058
     Dates: start: 201105, end: 20120911
  2. HUMIRA [Suspect]
     Route: 058
     Dates: start: 20120918

REACTIONS (7)
  - Pyrexia [Recovered/Resolved]
  - Pharyngitis [Recovered/Resolved]
  - Blister [Recovered/Resolved]
  - Abdominal pain [Not Recovered/Not Resolved]
  - Pain in extremity [Not Recovered/Not Resolved]
  - Rash [Recovered/Resolved]
  - Scar [Unknown]
